FAERS Safety Report 18017381 (Version 1)
Quarter: 2020Q3

REPORT INFORMATION
  Report Type: Report from Study
  Country: TH (occurrence: TH)
  Receive Date: 20200713
  Receipt Date: 20200713
  Transmission Date: 20201103
  Serious: Yes (Other)
  Sender: FDA-Public Use
  Company Number: NVSC2020TH194235

PATIENT
  Sex: Female

DRUGS (2)
  1. KISQALI [Suspect]
     Active Substance: RIBOCICLIB
     Dosage: 1 DF, QD (FOR 21 DAYS THEN STOPPED 7 DAYS)
     Route: 065
  2. KISQALI [Suspect]
     Active Substance: RIBOCICLIB
     Indication: BREAST CANCER METASTATIC
     Dosage: 2 DF, QD (IN THE MORNING FOR 21 DAYS THEN STOPPED 7 DAYS)
     Route: 065
     Dates: start: 20190926

REACTIONS (10)
  - Chest discomfort [Recovering/Resolving]
  - Feeding disorder [Recovering/Resolving]
  - Drug hypersensitivity [Recovering/Resolving]
  - Somnolence [Recovering/Resolving]
  - Vomiting [Recovering/Resolving]
  - Drooling [Recovering/Resolving]
  - Asphyxia [Recovering/Resolving]
  - Liver injury [Recovering/Resolving]
  - Dizziness [Recovering/Resolving]
  - Dyspepsia [Recovering/Resolving]
